FAERS Safety Report 21407081 (Version 1)
Quarter: 2022Q4

REPORT INFORMATION
  Report Type: Spontaneous
  Country: US (occurrence: None)
  Receive Date: 20221003
  Receipt Date: 20221003
  Transmission Date: 20230113
  Serious: No
  Sender: FDA-Public Use
  Company Number: None

PATIENT
  Age: 68 Year
  Sex: Male
  Weight: 67.5 kg

DRUGS (1)
  1. LINZESS [Suspect]
     Active Substance: LINACLOTIDE

REACTIONS (6)
  - Nausea [None]
  - Hyperhidrosis [None]
  - Flushing [None]
  - Body temperature increased [None]
  - Vomiting [None]
  - Fatigue [None]

NARRATIVE: CASE EVENT DATE: 20220922
